FAERS Safety Report 12337292 (Version 1)
Quarter: 2016Q2

REPORT INFORMATION
  Report Type: Spontaneous
  Country: US (occurrence: US)
  Receive Date: 20160505
  Receipt Date: 20160505
  Transmission Date: 20160815
  Serious: No
  Sender: FDA-Public Use
  Company Number: US-PFIZER INC-2015366611

PATIENT
  Age: 69 Year
  Sex: Female

DRUGS (4)
  1. IBRANCE [Suspect]
     Active Substance: PALBOCICLIB
     Indication: BREAST CANCER FEMALE
     Dosage: 125 MG ONCE A DAY, CYCLIC (21 DAYS ON/7 DAYS OFF)
     Dates: start: 20150827, end: 20160427
  2. LETROZOLE. [Concomitant]
     Active Substance: LETROZOLE
  3. ZOMETA [Concomitant]
     Active Substance: ZOLEDRONIC ACID
  4. FASLODEX [Concomitant]
     Active Substance: FULVESTRANT

REACTIONS (2)
  - Disease progression [Not Recovered/Not Resolved]
  - Breast cancer female [Not Recovered/Not Resolved]
